FAERS Safety Report 4547039-3 (Version None)
Quarter: 2004Q4

REPORT INFORMATION
  Report Type: 
  Country: None (occurrence: None)
  Receive Date: 20041223
  Receipt Date: 20041018
  Transmission Date: 20050328
  Serious: No
  Sender: FDA-Public Use
  Company Number: US-JNJFOC-20041005928

PATIENT
  Sex: Female
  Weight: 68.4932 kg

DRUGS (5)
  1. ORTHO EVRA [Suspect]
     Indication: CONTRACEPTION
     Dosage: 1 DOSE(S), 3 IN 4 WEEK, TRANSDERMAL
     Route: 062
     Dates: start: 20030101
  2. LEXAPRO [Concomitant]
  3. PREVACID [Concomitant]
  4. MOBIC [Concomitant]
  5. SKELAXIN [Concomitant]

REACTIONS (1)
  - METRORRHAGIA [None]
